FAERS Safety Report 5252985-1 (Version None)
Quarter: 2007Q1

REPORT INFORMATION
  Report Type: 
  Country: None (occurrence: None)
  Receive Date: 20070301
  Receipt Date: 20070220
  Transmission Date: 20070707
  Serious: Yes (Death)
  Sender: FDA-Public Use
  Company Number: CA-ROCHE-483553

PATIENT
  Age: 29 Year
  Sex: Female

DRUGS (8)
  1. ACCUTANE [Suspect]
     Indication: DRUG USE FOR UNKNOWN INDICATION
     Route: 048
  2. ZOLADEX [Suspect]
     Indication: DRUG USE FOR UNKNOWN INDICATION
     Route: 065
  3. EFFEXOR [Concomitant]
  4. DESLORATADINE [Concomitant]
  5. NAPROXEN [Concomitant]
  6. MINOCIN [Concomitant]
  7. PAXIL [Concomitant]
  8. CELEXA [Concomitant]

REACTIONS (1)
  - COMPLETED SUICIDE [None]
